FAERS Safety Report 8882197 (Version 2)
Quarter: 2012Q4

REPORT INFORMATION
  Report Type: 
  Country: US (occurrence: US)
  Receive Date: 20121105
  Receipt Date: 20121129
  Transmission Date: 20130627
  Serious: Yes (Life-Threatening, Other)
  Sender: FDA-Public Use
  Company Number: US-JNJFOC-20121017145

PATIENT
  Age: 33 Year
  Sex: Male
  Weight: 90.67 kg

DRUGS (8)
  1. REMICADE [Suspect]
     Indication: CROHN^S DISEASE
     Route: 042
  2. REMICADE [Suspect]
     Indication: CROHN^S DISEASE
     Route: 042
     Dates: start: 20121025
  3. REMICADE [Suspect]
     Indication: CROHN^S DISEASE
     Route: 042
     Dates: start: 20120418, end: 20120418
  4. VITAMIN C [Concomitant]
     Route: 065
  5. CALCIUM CARBONATE [Concomitant]
     Indication: OSTEOPENIA
     Route: 065
  6. GLUCOSAMINE / CHONDROITIN [Concomitant]
     Indication: ARTHRALGIA
     Route: 065
  7. MULTIVITAMINS [Concomitant]
     Route: 065
  8. ALLEGRA [Concomitant]
     Indication: PREMEDICATION
     Route: 065

REACTIONS (1)
  - Acute pulmonary histoplasmosis [Recovered/Resolved]
